FAERS Safety Report 20633817 (Version 1)
Quarter: 2022Q1

REPORT INFORMATION
  Report Type: Spontaneous
  Country: US (occurrence: None)
  Receive Date: 20220324
  Receipt Date: 20220324
  Transmission Date: 20220423
  Serious: No
  Sender: FDA-Public Use
  Company Number: US-Merz Pharmaceuticals GmbH-22-00786

PATIENT

DRUGS (3)
  1. XEOMIN [Suspect]
     Active Substance: INCOBOTULINUMTOXINA
     Indication: Product used for unknown indication
  2. XEOMIN [Suspect]
     Active Substance: INCOBOTULINUMTOXINA
  3. JEUVEAU [Concomitant]
     Active Substance: PRABOTULINUMTOXINA-XVFS

REACTIONS (1)
  - Drug ineffective [Recovered/Resolved]
